FAERS Safety Report 7720234-8 (Version None)
Quarter: 2011Q3

REPORT INFORMATION
  Report Type: 
  Country: None (occurrence: None)
  Receive Date: 20110831
  Receipt Date: 20110825
  Transmission Date: 20111222
  Serious: Yes (Hospitalization, Disabling, Other)
  Sender: FDA-Public Use
  Company Number: US-PFIZER INC-2011198187

PATIENT
  Sex: Male

DRUGS (3)
  1. GABAPENTIN [Interacting]
     Indication: DIABETIC NEUROPATHY
     Dosage: 600 MG, 4X/DAY
     Dates: start: 20050101
  2. CYMBALTA [Interacting]
     Indication: DIABETIC NEUROPATHY
     Dosage: 60 MG, DAILY
     Dates: start: 20110101, end: 20110801
  3. ACTOPLUS MET [Suspect]
     Indication: TYPE 2 DIABETES MELLITUS
     Dosage: UNK
     Dates: start: 20050101, end: 20110301

REACTIONS (10)
  - DRUG INTERACTION [None]
  - LOWER LIMB FRACTURE [None]
  - BEDRIDDEN [None]
  - HALLUCINATION [None]
  - WEIGHT DECREASED [None]
  - DEHYDRATION [None]
  - LIMB CRUSHING INJURY [None]
  - ANKLE FRACTURE [None]
  - LOSS OF CONSCIOUSNESS [None]
  - DIABETES MELLITUS INADEQUATE CONTROL [None]
